FAERS Safety Report 5020564-7 (Version None)
Quarter: 2006Q2

REPORT INFORMATION
  Report Type: 
  Country: None (occurrence: None)
  Receive Date: 20060602
  Receipt Date: 20060519
  Transmission Date: 20061013
  Serious: Yes (Hospitalization)
  Sender: FDA-Public Use
  Company Number: 2006BI007343

PATIENT
  Age: 39 Year
  Sex: Female
  Weight: 77.5651 kg

DRUGS (10)
  1. AVONEX [Suspect]
     Indication: MULTIPLE SCLEROSIS
     Dosage: 30 UG QW IM
     Route: 030
     Dates: start: 20051201
  2. CALCIUM GLUCONATE [Concomitant]
  3. MAGNESIUM [Concomitant]
  4. QUININE SULFATE [Concomitant]
  5. EFFEXOR [Concomitant]
  6. NEURONTIN [Concomitant]
  7. ALLERGY PILL NOS [Concomitant]
  8. DITROPAN [Concomitant]
  9. TRAZODONE HCL [Concomitant]
  10. SEROQUEL [Concomitant]

REACTIONS (3)
  - CONDITION AGGRAVATED [None]
  - DEHYDRATION [None]
  - MULTIPLE SCLEROSIS [None]
